FAERS Safety Report 21215485 (Version 1)
Quarter: 2022Q3

REPORT INFORMATION
  Report Type: Spontaneous
  Country: DE (occurrence: DE)
  Receive Date: 20220816
  Receipt Date: 20220816
  Transmission Date: 20221026
  Serious: Yes (Death, Other)
  Sender: FDA-Public Use
  Company Number: DE-DCGMA-22199146

PATIENT
  Age: 82 Year
  Sex: Female
  Weight: 76 kg

DRUGS (3)
  1. CLOPIDOGREL BISULFATE [Suspect]
     Active Substance: CLOPIDOGREL BISULFATE
     Indication: Stent placement
     Dosage: 75MG, QD
     Route: 048
     Dates: start: 20220610, end: 20220704
  2. CLOPIDOGREL BISULFATE [Suspect]
     Active Substance: CLOPIDOGREL BISULFATE
     Dosage: 75MG, QD
     Route: 048
     Dates: start: 20220622
  3. SIMVASTATIN [Suspect]
     Active Substance: SIMVASTATIN
     Indication: Lipid metabolism disorder
     Dosage: 40MG, QD
     Route: 048
     Dates: end: 20220630

REACTIONS (1)
  - Rhabdomyolysis [Fatal]
